FAERS Safety Report 7577193-0 (Version None)
Quarter: 2011Q2

REPORT INFORMATION
  Report Type: 
  Country: None (occurrence: None)
  Receive Date: 20110628
  Receipt Date: 20110615
  Transmission Date: 20111010
  Serious: Yes (Other)
  Sender: FDA-Public Use
  Company Number: GB-NOVOPROD-326367

PATIENT
  Sex: Male
  Weight: 123 kg

DRUGS (12)
  1. ASPIRIN [Concomitant]
     Dosage: 75 MG, UNK
  2. VICTOZA [Suspect]
     Dosage: 1.2 MG, QD
     Dates: start: 20110321, end: 20110407
  3. RAMIPRIL [Concomitant]
     Dosage: 10 MG, UNK
  4. METFORMIN HCL [Concomitant]
     Dosage: 1000 MG, QD
  5. CITALOPRAM HYDROBROMIDE [Concomitant]
     Dosage: 20 MG, QD
  6. VICTOZA [Suspect]
     Indication: TYPE 2 DIABETES MELLITUS
     Dosage: 0.6 MG, QD
     Dates: start: 20110224, end: 20110321
  7. SPIRIVA [Concomitant]
     Dosage: 2.5 UG, UNK
  8. VENTOLIN [Concomitant]
     Dosage: UNK
  9. FUROSEMIDE [Concomitant]
     Dosage: 40 MG, UNK
  10. PIOGLITAZONE [Concomitant]
     Dosage: 45 MG, QD
  11. ROSUVASTATIN [Concomitant]
     Dosage: 10 MG, QD
  12. AMLODIPINE [Concomitant]

REACTIONS (3)
  - FLUID RETENTION [None]
  - ABDOMINAL DISTENSION [None]
  - WEIGHT INCREASED [None]
